FAERS Safety Report 15228931 (Version 1)
Quarter: 2018Q3

REPORT INFORMATION
  Report Type: Spontaneous
  Country: US (occurrence: US)
  Receive Date: 20180801
  Receipt Date: 20180801
  Transmission Date: 20181010
  Serious: No
  Sender: FDA-Public Use
  Company Number: US-AMGEN-USASP2017181972

PATIENT
  Age: 53 Year
  Sex: Male
  Weight: 98.2 kg

DRUGS (1)
  1. NPLATE [Suspect]
     Active Substance: ROMIPLOSTIM
     Indication: PRODUCT USED FOR UNKNOWN INDICATION
     Dosage: 285 MUG, UNK
     Route: 065
     Dates: start: 20171121

REACTIONS (1)
  - Product label confusion [Unknown]

NARRATIVE: CASE EVENT DATE: 20171121
